FAERS Safety Report 22778671 (Version 4)
Quarter: 2024Q1

REPORT INFORMATION
  Report Type: Spontaneous
  Country: US (occurrence: US)
  Receive Date: 20230802
  Receipt Date: 20240215
  Transmission Date: 20240409
  Serious: Yes (Hospitalization, Other)
  Sender: FDA-Public Use
  Company Number: US-PFIZER INC-PV202300133280

PATIENT
  Age: 75 Year
  Sex: Female

DRUGS (2)
  1. IBRANCE [Suspect]
     Active Substance: PALBOCICLIB
     Dosage: 125 MG
  2. IBRANCE [Suspect]
     Active Substance: PALBOCICLIB
     Dosage: 100 MG, CYCLIC (TAKE 1 TAB BY MOUTH DAILY, CAN BE TAKEN WITH OR WITHOUT FOOD, 21 DAYS ON 7 DAYS OFF)
     Route: 048

REACTIONS (7)
  - Second primary malignancy [Unknown]
  - Ear neoplasm malignant [Unknown]
  - Ear infection [Unknown]
  - Cytopenia [Unknown]
  - Vomiting [Unknown]
  - Nausea [Unknown]
  - Drug hypersensitivity [Unknown]
